FAERS Safety Report 10242460 (Version 4)
Quarter: 2014Q4

REPORT INFORMATION
  Report Type: Spontaneous
  Country: CA (occurrence: CA)
  Receive Date: 20140617
  Receipt Date: 20141205
  Transmission Date: 20150528
  Serious: Yes (Death)
  Sender: FDA-Public Use
  Company Number: CA-ACTELION-A-US2014-100093

PATIENT
  Age: 53 Year
  Sex: Female

DRUGS (1)
  1. CARIPUL [Suspect]
     Active Substance: EPOPROSTENOL
     Indication: PULMONARY ARTERIAL HYPERTENSION
     Dosage: 30 MG, QD
     Route: 041
     Dates: start: 20140318, end: 20140522

REACTIONS (3)
  - Pulmonary arterial hypertension [Fatal]
  - Disease progression [Fatal]
  - Right ventricular failure [Fatal]

NARRATIVE: CASE EVENT DATE: 20140601
